FAERS Safety Report 4598847-4 (Version None)
Quarter: 2005Q1

REPORT INFORMATION
  Report Type: 
  Country: None (occurrence: None)
  Receive Date: 20050302
  Receipt Date: 20041220
  Transmission Date: 20050727
  Serious: Yes (Hospitalization, Other)
  Sender: FDA-Public Use
  Company Number: 2004234382US

PATIENT
  Age: 75 Year
  Sex: Male
  Weight: 27.2158 kg

DRUGS (8)
  1. BEXTRA [Suspect]
     Indication: RENAL FAILURE ACUTE
     Dosage: 20 MG (20 MG, 1 IN 1 D), ORAL
     Route: 048
     Dates: start: 20030101, end: 20040108
  2. IBUPROFEN [Suspect]
     Indication: ILL-DEFINED DISORDER
     Dosage: 800-1600 MG (200 MG , 4 TO 8 TABLETS DAILY), ORAL
     Route: 048
     Dates: end: 20040204
  3. CHLORPHENAMINE (CHLORPHENAMINE) [Concomitant]
  4. TUSSIN DM [Concomitant]
  5. GUAIFENESIN (FUAIFENESIN) [Concomitant]
  6. PSEUDOEPHEDRINE HYDROCHLORIDE [Concomitant]
  7. ACETAMINOPHEN [Concomitant]
  8. ACETYLSALICYLIC ACID SRT [Concomitant]

REACTIONS (1)
  - TUBULOINTERSTITIAL NEPHRITIS [None]
